FAERS Safety Report 6884154-3 (Version None)
Quarter: 2010Q3

REPORT INFORMATION
  Report Type: 
  Country: None (occurrence: None)
  Receive Date: 20100727
  Receipt Date: 20090721
  Transmission Date: 20110219
  Serious: Yes (Other)
  Sender: FDA-Public Use
  Company Number: 2009SP020197

PATIENT
  Age: 31 Year
  Sex: Female
  Weight: 65 kg

DRUGS (7)
  1. CERAZETTE (DESOGESTREL / 00754001/ ) [Suspect]
     Indication: HORMONE LEVEL ABNORMAL
     Dosage: ; PO
     Route: 048
     Dates: start: 20090301
  2. CERAZETTE (DESOGESTREL / 00754001/ ) [Suspect]
     Indication: MENSTRUAL DISORDER
     Dosage: ; PO
     Route: 048
     Dates: start: 20090301
  3. CERAZETTE (DESOGESTREL /00754001/) [Suspect]
  4. DIAZEPAM [Concomitant]
  5. MICROPIL /00861601/ [Concomitant]
  6. OMEPRAZOLE [Concomitant]
  7. DIAZEPAM [Concomitant]

REACTIONS (20)
  - ABORTION SPONTANEOUS [None]
  - AMENORRHOEA [None]
  - BACK PAIN [None]
  - BREAST PAIN [None]
  - BREAST SWELLING [None]
  - BURNING SENSATION [None]
  - DRUG INTERACTION [None]
  - EYE DISORDER [None]
  - HEADACHE [None]
  - HYPERTENSION [None]
  - INFLUENZA [None]
  - MENSTRUATION IRREGULAR [None]
  - NERVOUSNESS [None]
  - OFF LABEL USE [None]
  - PARAESTHESIA [None]
  - PARALYSIS [None]
  - SELF-MEDICATION [None]
  - SWELLING [None]
  - UTERINE DISORDER [None]
  - VAGINAL HAEMORRHAGE [None]
